FAERS Safety Report 22271069 (Version 1)
Quarter: 2023Q2

REPORT INFORMATION
  Report Type: Spontaneous
  Country: US (occurrence: None)
  Receive Date: 20230428
  Receipt Date: 20230428
  Transmission Date: 20230722
  Serious: Yes (Death)
  Sender: FDA-Public Use
  Company Number: None

PATIENT
  Age: 63 Year
  Sex: Male

DRUGS (11)
  1. STELARA [Suspect]
     Active Substance: USTEKINUMAB
     Indication: Crohn^s disease
     Dosage: 90MG 8 WEEKS SUBCUTANEOUS?
     Route: 058
     Dates: start: 20221115
  2. BUDESONIDE [Concomitant]
     Active Substance: BUDESONIDE
  3. CALCIUM 600MG W/D [Concomitant]
  4. LOMOTIL [Concomitant]
  5. LOSARTAN [Concomitant]
     Active Substance: LOSARTAN
  6. PAROXETINE [Concomitant]
     Active Substance: PAROXETINE
  7. PREDNISONE [Concomitant]
     Active Substance: PREDNISONE
  8. TAMSULOSIN [Concomitant]
     Active Substance: TAMSULOSIN
  9. TRAMADOL [Concomitant]
     Active Substance: TRAMADOL
  10. VITAMIN B12 [Concomitant]
     Active Substance: CYANOCOBALAMIN
  11. VITAMIN D 1 [Concomitant]

REACTIONS (1)
  - Death [None]
